FAERS Safety Report 6956728-2 (Version None)
Quarter: 2010Q3

REPORT INFORMATION
  Report Type: 
  Country: None (occurrence: None)
  Receive Date: 20100830
  Receipt Date: 20100817
  Transmission Date: 20110219
  Serious: Yes (Other)
  Sender: FDA-Public Use
  Company Number: PHHY2010JP41310

PATIENT
  Sex: Female
  Weight: 46 kg

DRUGS (10)
  1. ZOMETA [Suspect]
     Indication: METASTASES TO BONE
     Dosage: 4 MG, UNK
     Route: 041
     Dates: start: 20060622, end: 20071120
  2. ACTONEL [Suspect]
     Indication: BONE DENSITY DECREASED
     Dosage: UNK
     Route: 048
     Dates: start: 20040725, end: 20060305
  3. FOSAMAX [Suspect]
     Indication: BONE DENSITY DECREASED
     Dosage: UNK
     Route: 048
     Dates: start: 20060306, end: 20060621
  4. ARIMIDEX [Concomitant]
     Indication: BREAST CANCER
     Dosage: 1 MG DAILY
     Route: 048
     Dates: start: 20040301, end: 20060305
  5. AROMASIN [Concomitant]
     Indication: METASTASES TO BONE
     Dosage: 25 MG DAILY
     Route: 048
     Dates: start: 20060306, end: 20061028
  6. FURTULON [Concomitant]
     Indication: METASTASES TO BONE
     Dosage: 1200 MG DAILY
     Route: 048
     Dates: start: 20061028, end: 20080111
  7. FURTULON [Concomitant]
     Dosage: 1200 MG DAILY
     Route: 048
     Dates: start: 20090511, end: 20100709
  8. ENDOXAN [Concomitant]
     Indication: METASTASES TO BONE
     Dosage: 100 MG DAILY
     Route: 048
     Dates: start: 20061028, end: 20080711
  9. ENDOXAN [Concomitant]
     Dosage: 100 MG DAILY
     Route: 048
     Dates: start: 20090511, end: 20100709
  10. FARESTON [Concomitant]
     Indication: METASTASES TO BONE
     Dosage: 120 MG DAILY
     Route: 048
     Dates: start: 20080711, end: 20090511

REACTIONS (14)
  - BLOOD ALKALINE PHOSPHATASE INCREASED [None]
  - BONE DISORDER [None]
  - GINGIVAL BLEEDING [None]
  - HAEMATOCRIT DECREASED [None]
  - HAEMOGLOBIN DECREASED [None]
  - IMPAIRED HEALING [None]
  - ORAL DISCOMFORT [None]
  - OSTEONECROSIS OF JAW [None]
  - PARAESTHESIA ORAL [None]
  - PERIODONTAL DISEASE [None]
  - RED BLOOD CELL COUNT DECREASED [None]
  - SECONDARY SEQUESTRUM [None]
  - TOOTH EXTRACTION [None]
  - WHITE BLOOD CELL COUNT DECREASED [None]
